FAERS Safety Report 4485692-3 (Version None)
Quarter: 2004Q4

REPORT INFORMATION
  Report Type: 
  Country: None (occurrence: None)
  Receive Date: 20041026
  Receipt Date: 20041004
  Transmission Date: 20050328
  Serious: Yes (Hospitalization)
  Sender: FDA-Public Use
  Company Number: US-GLAXOSMITHKLINE-A0528382A

PATIENT
  Age: 17 Year
  Sex: Female
  Weight: 51.4 kg

DRUGS (1)
  1. LAMICTAL [Suspect]
     Route: 048
     Dates: end: 20040929

REACTIONS (7)
  - ALANINE AMINOTRANSFERASE INCREASED [None]
  - ASPARTATE AMINOTRANSFERASE INCREASED [None]
  - ASTHMA [None]
  - LYMPHADENOPATHY [None]
  - PYREXIA [None]
  - RASH [None]
  - URINARY TRACT INFECTION [None]
